FAERS Safety Report 16627114 (Version 1)
Quarter: 2019Q3

REPORT INFORMATION
  Report Type: Spontaneous
  Country: FR (occurrence: FR)
  Receive Date: 20190724
  Receipt Date: 20190724
  Transmission Date: 20191004
  Serious: Yes (Other)
  Sender: FDA-Public Use
  Company Number: FR-BAYER-2019-132492

PATIENT
  Age: 26 Year
  Sex: Female
  Weight: 60 kg

DRUGS (1)
  1. YAZ [Suspect]
     Active Substance: DROSPIRENONE\ETHINYL ESTRADIOL
     Indication: ORAL CONTRACEPTION
     Dosage: 1 DF, UNK
     Route: 048

REACTIONS (3)
  - Secondary hypertension [Recovering/Resolving]
  - Headache [Recovering/Resolving]
  - Hyperaldosteronism [Recovering/Resolving]

NARRATIVE: CASE EVENT DATE: 201810
